FAERS Safety Report 10671126 (Version 3)
Quarter: 2015Q1

REPORT INFORMATION
  Report Type: Spontaneous
  Country: AU (occurrence: AU)
  Receive Date: 20141223
  Receipt Date: 20150204
  Transmission Date: 20150720
  Serious: Yes (Other)
  Sender: FDA-Public Use
  Company Number: PHHY2014AU067172

PATIENT
  Age: 31 Year
  Sex: Female
  Weight: 58 kg

DRUGS (1)
  1. NEORAL [Suspect]
     Active Substance: CYCLOSPORINE
     Indication: PRODUCT USED FOR UNKNOWN INDICATION
     Dosage: FOETAL DRUG EXPOSURE VIA FATHER (FATHER DOSE 260 MG)
     Route: 065

REACTIONS (3)
  - Exposure via father [Unknown]
  - Normal newborn [Unknown]
  - Perineal injury [Unknown]
